FAERS Safety Report 19801567 (Version 1)
Quarter: 2021Q3

REPORT INFORMATION
  Report Type: Spontaneous
  Country: FR (occurrence: FR)
  Receive Date: 20210908
  Receipt Date: 20210908
  Transmission Date: 20211014
  Serious: Yes (Death, Life-Threatening, Hospitalization)
  Sender: FDA-Public Use
  Company Number: FR-TEVA-2021-FR-1949880

PATIENT
  Age: 68 Year
  Sex: Female

DRUGS (10)
  1. CISPLATIN. [Suspect]
     Active Substance: CISPLATIN
     Indication: DIFFUSE LARGE B-CELL LYMPHOMA
     Dosage: 2 CYCLES
     Route: 065
  2. CYCLOPHOSPHAMIDE. [Suspect]
     Active Substance: CYCLOPHOSPHAMIDE
     Indication: LYMPHODEPLETION
     Dosage: 500 MG/M2 DAILY;
     Route: 065
  3. DEXAMETHASONE. [Suspect]
     Active Substance: DEXAMETHASONE
     Dosage: 40 MILLIGRAM DAILY;
     Route: 042
  4. FLUDARABINE [Suspect]
     Active Substance: FLUDARABINE PHOSPHATE
     Indication: LYMPHODEPLETION
     Dosage: 30 MG/M2 DAILY;
     Route: 065
  5. TOCILIZUMAB. [Suspect]
     Active Substance: TOCILIZUMAB
     Indication: HYPOXIA
     Dosage: SINGLE DOSE
     Route: 065
  6. ARACYTINE [Suspect]
     Active Substance: CYTARABINE
     Indication: DIFFUSE LARGE B-CELL LYMPHOMA
     Dosage: 2 CYCLES
     Route: 065
  7. AXICEL (AXICABTAGENE CILOLEUCEL) [Suspect]
     Active Substance: AXICABTAGENE CILOLEUCEL
     Indication: DIFFUSE LARGE B-CELL LYMPHOMA
     Dosage: 2X106 CAR TCELLS PER KILOGRAM
     Route: 050
  8. AXICEL (AXICABTAGENE CILOLEUCEL) [Suspect]
     Active Substance: AXICABTAGENE CILOLEUCEL
     Indication: CAUDA EQUINA SYNDROME
  9. DEXAMETHASONE. [Suspect]
     Active Substance: DEXAMETHASONE
     Indication: IMMUNE EFFECTOR CELL-ASSOCIATED NEUROTOXICITY SYNDROME
     Dosage: 40 MILLIGRAM DAILY;
     Route: 065
  10. DEXAMETHASONE. [Suspect]
     Active Substance: DEXAMETHASONE
     Indication: DIFFUSE LARGE B-CELL LYMPHOMA
     Dosage: 2 CYCLES
     Route: 065

REACTIONS (10)
  - Hypotension [Unknown]
  - Sepsis [Unknown]
  - Hypoxia [Unknown]
  - Gastrointestinal injury [Unknown]
  - Duodenal ulcer [Unknown]
  - Cytokine release syndrome [Unknown]
  - Cardiac arrest [Unknown]
  - Systemic candida [Fatal]
  - Haemoperitoneum [Unknown]
  - Immune effector cell-associated neurotoxicity syndrome [Recovered/Resolved]
